FAERS Safety Report 16071259 (Version 1)
Quarter: 2019Q1

REPORT INFORMATION
  Report Type: Spontaneous
  Country: US (occurrence: US)
  Receive Date: 20190314
  Receipt Date: 20190314
  Transmission Date: 20190418
  Serious: No
  Sender: FDA-Public Use
  Company Number: US-PFIZER INC-2019103009

PATIENT
  Sex: Male

DRUGS (1)
  1. LYRICA [Suspect]
     Active Substance: PREGABALIN
     Dosage: 200 MG, 2X/DAY [EVERY 12 HOURS, USUALLY AT 8:00 IN THE MORNING AND AT 8:00 IN THE EVENING]

REACTIONS (2)
  - Intentional product misuse [Unknown]
  - Limb discomfort [Unknown]
